FAERS Safety Report 11286158 (Version 1)
Quarter: 2015Q3

REPORT INFORMATION
  Report Type: Spontaneous
  Country: US (occurrence: US)
  Receive Date: 20150721
  Receipt Date: 20150721
  Transmission Date: 20151125
  Serious: No
  Sender: FDA-Public Use
  Company Number: US-UNITED THERAPEUTICS-UNT-2014-011659

PATIENT
  Age: 50 Year
  Sex: Female
  Weight: 54.42 kg

DRUGS (2)
  1. OPSUMIT [Concomitant]
     Active Substance: MACITENTAN
     Indication: PRODUCT USED FOR UNKNOWN INDICATION
  2. TYVASO [Suspect]
     Active Substance: TREPROSTINIL
     Indication: PULMONARY ARTERIAL HYPERTENSION
     Dosage: 18-54 MICROGRAMS, QID
     Dates: start: 20141117, end: 20141209

REACTIONS (5)
  - Oedema peripheral [Unknown]
  - Therapy cessation [Unknown]
  - Pain in extremity [Unknown]
  - Constipation [Unknown]
  - Throat irritation [Unknown]

NARRATIVE: CASE EVENT DATE: 2014
